APPROVED DRUG PRODUCT: LOVASTATIN
Active Ingredient: LOVASTATIN
Strength: 10MG
Dosage Form/Route: TABLET;ORAL
Application: A078296 | Product #001 | TE Code: AB
Applicant: LUPIN LTD
Approved: Mar 14, 2008 | RLD: No | RS: No | Type: RX